FAERS Safety Report 4581012-4 (Version None)
Quarter: 2005Q1

REPORT INFORMATION
  Report Type: 
  Country: None (occurrence: None)
  Receive Date: 20050214
  Receipt Date: 20040719
  Transmission Date: 20050727
  Serious: No
  Sender: FDA-Public Use
  Company Number: US-GLAXOSMITHKLINE-A0518789A

PATIENT
  Sex: Male

DRUGS (1)
  1. LAMICTAL [Suspect]
     Dosage: 25MG ALTERNATE DAYS
     Route: 048

REACTIONS (2)
  - GLOSSODYNIA [None]
  - STOMATITIS [None]
